FAERS Safety Report 10965148 (Version 1)
Quarter: 2015Q1

REPORT INFORMATION
  Report Type: Spontaneous
  Country: US (occurrence: US)
  Receive Date: 20150330
  Receipt Date: 20150330
  Transmission Date: 20150721
  Serious: Yes (Other)
  Sender: FDA-Public Use
  Company Number: US-AMGEN-USASP2015028444

PATIENT

DRUGS (3)
  1. MOBIC [Concomitant]
     Active Substance: MELOXICAM
     Dosage: UNK
  2. PREDNISONE. [Concomitant]
     Active Substance: PREDNISONE
     Dosage: 1.0 METHOD WEEKLY
  3. ENBREL [Suspect]
     Active Substance: ETANERCEPT
     Indication: RHEUMATOID ARTHRITIS
     Dosage: UNK
     Route: 065

REACTIONS (3)
  - Rheumatoid arthritis [Unknown]
  - Nausea [Unknown]
  - Therapeutic response decreased [Unknown]
